FAERS Safety Report 5209780-9 (Version None)
Quarter: 2006Q4

REPORT INFORMATION
  Report Type: 
  Country: None (occurrence: None)
  Receive Date: 20061107
  Receipt Date: 20060811
  Transmission Date: 20070319
  Serious: No
  Sender: FDA-Public Use
  Company Number: IPX00004

PATIENT
  Age: 7 Year
  Sex: Male
  Weight: 21 kg

DRUGS (1)
  1. IPLEX [Suspect]
     Dosage: 10.5 MG/DAILY/SC
     Route: 058
     Dates: start: 20060718

REACTIONS (2)
  - INJECTION SITE ERYTHEMA [None]
  - INJECTION SITE IRRITATION [None]
